FAERS Safety Report 14008609 (Version 2)
Quarter: 2017Q4

REPORT INFORMATION
  Report Type: Spontaneous
  Country: JP (occurrence: JP)
  Receive Date: 20170925
  Receipt Date: 20171002
  Transmission Date: 20180321
  Serious: Yes (Death, Other)
  Sender: FDA-Public Use
  Company Number: JP-ELI_LILLY_AND_COMPANY-JP201709007840

PATIENT
  Age: 74 Year
  Sex: Male
  Weight: 37 kg

DRUGS (11)
  1. DULOXETINE HYDROCHLORIDE. [Suspect]
     Active Substance: DULOXETINE HYDROCHLORIDE
     Indication: DEPRESSION
     Dosage: 20 MG, DAILY
     Route: 048
     Dates: start: 201602, end: 20160404
  2. ALDACTONE [Concomitant]
     Active Substance: SPIRONOLACTONE
     Dosage: UNK
     Dates: end: 20160323
  3. ASPARA POTASSIUM [Concomitant]
     Active Substance: POTASSIUM ASPARTATE
     Dosage: UNK
     Dates: end: 20160323
  4. GANATON [Suspect]
     Active Substance: ITOPRIDE
     Indication: CHRONIC GASTRITIS
     Dosage: 50 MG, TID
     Route: 048
     Dates: end: 20160329
  5. LASIX [Concomitant]
     Active Substance: FUROSEMIDE
     Indication: OEDEMA
     Dosage: UNK
     Route: 048
     Dates: end: 20160323
  6. DAIKENCHUTO [Suspect]
     Active Substance: HERBALS
     Indication: GASTROINTESTINAL MOTILITY DISORDER
     Dosage: 1 G, BID
     Route: 048
     Dates: start: 20160324, end: 20160405
  7. FOIPAN [Suspect]
     Active Substance: CAMOSTAT MESYLATE
     Indication: OESOPHAGITIS
     Dosage: UNK, TID
     Route: 048
     Dates: start: 20160329, end: 20160401
  8. LUPRAC [Suspect]
     Active Substance: TORSEMIDE
     Indication: OEDEMA
     Dosage: 4 MG, DAILY
     Route: 048
     Dates: start: 20160324, end: 20160405
  9. LASIX [Concomitant]
     Active Substance: FUROSEMIDE
     Dosage: 10 MG, DAILY
     Route: 048
     Dates: start: 20160405, end: 20160406
  10. THYRADIN S [Suspect]
     Active Substance: LEVOTHYROXINE SODIUM
     Indication: HYPOTHYROIDISM
     Dosage: 25 MG, DAILY
     Route: 048
     Dates: end: 20160404
  11. GASMOTIN [Suspect]
     Active Substance: MOSAPRIDE CITRATE
     Indication: GASTROINTESTINAL MOTILITY DISORDER
     Dosage: UNK
     Route: 048
     Dates: end: 20160323

REACTIONS (7)
  - Hypoglycaemia [Recovering/Resolving]
  - Dehydration [Unknown]
  - Platelet count decreased [Unknown]
  - Disseminated intravascular coagulation [Unknown]
  - Oesophagitis [Unknown]
  - Drug-induced liver injury [Fatal]
  - Pneumonia [Unknown]

NARRATIVE: CASE EVENT DATE: 20160324
